FAERS Safety Report 6346397-7 (Version None)
Quarter: 2009Q3

REPORT INFORMATION
  Report Type: 
  Country: None (occurrence: None)
  Receive Date: 20090909
  Receipt Date: 20090831
  Transmission Date: 20100115
  Serious: Yes (Hospitalization)
  Sender: FDA-Public Use
  Company Number: FR-WYE-H10848809

PATIENT
  Sex: Male

DRUGS (13)
  1. CORDARONE [Suspect]
     Route: 048
     Dates: start: 20090201
  2. FLUOROURACIL [Suspect]
     Indication: COLON CANCER METASTATIC
     Route: 042
     Dates: start: 20090729, end: 20090729
  3. INEXIUM [Concomitant]
     Route: 048
     Dates: start: 20081001, end: 20090730
  4. LASIX [Concomitant]
     Route: 048
     Dates: start: 20081001, end: 20090730
  5. PREVISCAN [Concomitant]
     Route: 048
     Dates: start: 20090601, end: 20090730
  6. CALCIUM FOLINATE [Concomitant]
     Indication: COLON CANCER METASTATIC
  7. CARDENSIEL [Concomitant]
     Route: 048
  8. CETORNAN [Concomitant]
  9. DIFFU K [Concomitant]
     Route: 048
  10. JOSIR [Concomitant]
     Route: 048
  11. KARDEGIC [Concomitant]
     Route: 048
  12. OXALIPLATIN [Suspect]
     Indication: COLON CANCER METASTATIC
     Route: 042
     Dates: start: 20090729, end: 20090729
  13. ALDACTONE [Concomitant]
     Route: 048

REACTIONS (3)
  - ANAEMIA [None]
  - CONDITION AGGRAVATED [None]
  - THROMBOCYTOPENIA [None]
